FAERS Safety Report 5682506-0 (Version None)
Quarter: 2008Q1

REPORT INFORMATION
  Report Type: 
  Country: None (occurrence: None)
  Receive Date: 20080326
  Receipt Date: 20080326
  Transmission Date: 20080703
  Serious: Yes (Death)
  Sender: FDA-Public Use
  Company Number: None

PATIENT
  Age: 63 Year
  Sex: Male
  Weight: 97.8 kg

DRUGS (7)
  1. NICARDIPINE HYDROCHLORIDE [Suspect]
     Indication: WRONG DRUG ADMINISTERED
     Dosage: 25MG IV OTO
     Route: 042
     Dates: start: 20080112
  2. LACTULOSE [Concomitant]
  3. MITODRINE [Concomitant]
  4. CEFEPIME [Concomitant]
  5. OCTREOTIDE ACETATE [Concomitant]
  6. FENTANYL [Concomitant]
  7. VIT K [Concomitant]

REACTIONS (2)
  - HYPOTENSION [None]
  - WRONG DRUG ADMINISTERED [None]
